FAERS Safety Report 8188751-7 (Version None)
Quarter: 2012Q1

REPORT INFORMATION
  Report Type: 
  Country: None (occurrence: None)
  Receive Date: 20120306
  Receipt Date: 20120229
  Transmission Date: 20120608
  Serious: Yes (Other)
  Sender: FDA-Public Use
  Company Number: BR-BAYER-2012-019960

PATIENT
  Age: 73 Year
  Sex: Male

DRUGS (1)
  1. ASPIRIN [Suspect]
     Dosage: UNK

REACTIONS (2)
  - BASILAR ARTERY OCCLUSION [None]
  - TRANSIENT ISCHAEMIC ATTACK [None]
